FAERS Safety Report 19239264 (Version 1)
Quarter: 2021Q2

REPORT INFORMATION
  Report Type: Spontaneous
  Country: US (occurrence: US)
  Receive Date: 20210510
  Receipt Date: 20210510
  Transmission Date: 20210717
  Serious: Yes (Death, Other)
  Sender: FDA-Public Use
  Company Number: US-OTSUKA-2021_015389

PATIENT

DRUGS (2)
  1. DECITABINE. [Suspect]
     Active Substance: DECITABINE
     Indication: MYELOPROLIFERATIVE NEOPLASM
     Dosage: UNK
     Route: 042
  2. VENETOCLAX. [Suspect]
     Active Substance: VENETOCLAX
     Indication: MYELOPROLIFERATIVE NEOPLASM
     Dosage: UNK
     Route: 065

REACTIONS (11)
  - Sepsis [Unknown]
  - Decreased appetite [Unknown]
  - Diarrhoea [Unknown]
  - Pancytopenia [Unknown]
  - Product use in unapproved indication [Unknown]
  - Febrile neutropenia [Unknown]
  - Haemorrhage intracranial [Fatal]
  - Infection [Fatal]
  - Hepatic function abnormal [Unknown]
  - Fatigue [Unknown]
  - Off label use [Unknown]
